FAERS Safety Report 24936915 (Version 2)
Quarter: 2025Q1

REPORT INFORMATION
  Report Type: Spontaneous
  Country: PL (occurrence: PL)
  Receive Date: 20250206
  Receipt Date: 20250219
  Transmission Date: 20250409
  Serious: Yes (Hospitalization)
  Sender: PFIZER
  Company Number: PL-LEKAM-2025-05-Budezonid LEK-AM

PATIENT
  Age: 6 Year
  Sex: Male

DRUGS (4)
  1. BUDESONIDE [Suspect]
     Active Substance: BUDESONIDE
  2. VORICONAZOLE [Concomitant]
     Active Substance: VORICONAZOLE
  3. CEFTRIAXONE [Concomitant]
     Active Substance: CEFTRIAXONE
  4. VANCOMYCIN [Concomitant]
     Active Substance: VANCOMYCIN

REACTIONS (6)
  - Abdominal pain upper [Recovered/Resolved]
  - Pyrexia [Recovered/Resolved]
  - Liver abscess [Recovered/Resolved]
  - Sinusitis [Recovered/Resolved]
  - Otitis media [Recovered/Resolved]
  - Hypoacusis [Recovered/Resolved]
